FAERS Safety Report 16973108 (Version 3)
Quarter: 2020Q2

REPORT INFORMATION
  Report Type: Spontaneous
  Country: JP (occurrence: JP)
  Receive Date: 20191030
  Receipt Date: 20200626
  Transmission Date: 20200713
  Serious: Yes (Hospitalization, Other)
  Sender: FDA-Public Use
  Company Number: JP-009507513-1910JPN003456J

PATIENT
  Age: 78 Year
  Sex: Male
  Weight: 60 kg

DRUGS (8)
  1. OXIS [Concomitant]
     Active Substance: FORMOTEROL FUMARATE
     Indication: CHRONIC OBSTRUCTIVE PULMONARY DISEASE
     Dosage: 9 MICROGRAM, BID
  2. AMBROXOL [Concomitant]
     Active Substance: AMBROXOL
     Indication: CHRONIC OBSTRUCTIVE PULMONARY DISEASE
     Dosage: 45 MILLIGRAM, QD
     Route: 048
  3. NEXIUM [Concomitant]
     Active Substance: ESOMEPRAZOLE MAGNESIUM
     Indication: CHRONIC OBSTRUCTIVE PULMONARY DISEASE
     Dosage: 20 MILLIGRAM, QD
     Route: 048
  4. KEYTRUDA [Suspect]
     Active Substance: PEMBROLIZUMAB
     Indication: NON-SMALL CELL LUNG CANCER
     Dosage: 200 MILLIGRAM/KILOGRAM, Q3W
     Route: 041
     Dates: start: 20190710, end: 20190710
  5. ROSUVASTATIN. [Concomitant]
     Active Substance: ROSUVASTATIN
     Indication: DYSLIPIDAEMIA
     Dosage: 2.5 MILLIGRAM, QD
     Route: 048
  6. FEXOFENADINE HYDROCHLORIDE. [Concomitant]
     Active Substance: FEXOFENADINE HYDROCHLORIDE
     Indication: RHINITIS ALLERGIC
     Dosage: 60 MILLIGRAM, BID
     Route: 048
  7. NITRODERM [Concomitant]
     Active Substance: NITROGLYCERIN
     Indication: ANGINA PECTORIS
     Dosage: 25 MILLIGRAM, QD
     Route: 051
  8. RULID [Concomitant]
     Active Substance: ROXITHROMYCIN
     Indication: SINOBRONCHITIS
     Dosage: 150 MILLIGRAM, QD
     Route: 048

REACTIONS (3)
  - Immune-mediated hepatic disorder [Recovered/Resolved]
  - Chronic gastritis [Unknown]
  - Immune-mediated enterocolitis [Recovered/Resolved]

NARRATIVE: CASE EVENT DATE: 20190806
